FAERS Safety Report 7265743-3 (Version None)
Quarter: 2011Q1

REPORT INFORMATION
  Report Type: 
  Country: None (occurrence: None)
  Receive Date: 20110131
  Receipt Date: 20110117
  Transmission Date: 20110831
  Serious: Yes (Hospitalization, Other)
  Sender: FDA-Public Use
  Company Number: US-ELI_LILLY_AND_COMPANY-US201101004371

PATIENT
  Age: 16 Year
  Sex: Male

DRUGS (5)
  1. CAFFEINE [Concomitant]
     Dosage: 1.6 G, UNK
  2. ARIPIPRAZOLE [Concomitant]
     Indication: BIPOLAR DISORDER
     Dosage: 5 MG, DAILY (1/D)
  3. ARIPIPRAZOLE [Concomitant]
     Dosage: 10 MG, DAILY (1/D)
  4. PROZAC [Suspect]
     Indication: BIPOLAR DISORDER
     Dosage: 30 MG, DAILY (1/D)
  5. LITHIUM [Concomitant]
     Indication: BIPOLAR DISORDER
     Dosage: 450 MG, 2/D

REACTIONS (4)
  - RHABDOMYOLYSIS [None]
  - UNDERDOSE [None]
  - DRUG INTERACTION [None]
  - DRUG RASH WITH EOSINOPHILIA AND SYSTEMIC SYMPTOMS [None]
